FAERS Safety Report 13983044 (Version 3)
Quarter: 2018Q3

REPORT INFORMATION
  Report Type: Spontaneous
  Country: PR (occurrence: US)
  Receive Date: 20170918
  Receipt Date: 20180810
  Transmission Date: 20181010
  Serious: Yes (Hospitalization)
  Sender: FDA-Public Use
  Company Number: PR-JNJFOC-20170901579

PATIENT
  Age: 64 Year
  Sex: Female

DRUGS (21)
  1. LASIX [Concomitant]
     Active Substance: FUROSEMIDE
     Route: 065
  2. METOPROLOL TARTRATE. [Concomitant]
     Active Substance: METOPROLOL TARTRATE
     Route: 065
  3. NICOTINE. [Concomitant]
     Active Substance: NICOTINE
     Route: 065
  4. MIRTAZAPINE. [Concomitant]
     Active Substance: MIRTAZAPINE
     Route: 065
     Dates: start: 20150825
  5. MAG?OX [Concomitant]
     Active Substance: MAGNESIUM OXIDE
     Dosage: 400 800 MG
     Route: 065
  6. MEGESTROL [Concomitant]
     Active Substance: MEGESTROL
     Route: 065
  7. PREDNISONE. [Concomitant]
     Active Substance: PREDNISONE
     Route: 065
  8. XARELTO [Suspect]
     Active Substance: RIVAROXABAN
     Indication: DEEP VEIN THROMBOSIS
     Dosage: IN VARYING DOSES OF 15 MG AND 20 MG
     Route: 048
     Dates: start: 20151030, end: 20160502
  9. FERROUS SULFATE. [Concomitant]
     Active Substance: FERROUS SULFATE
     Route: 065
  10. LOSARTAN. [Concomitant]
     Active Substance: LOSARTAN
     Route: 065
  11. POTASSIUM CHLORIDE. [Concomitant]
     Active Substance: POTASSIUM CHLORIDE
     Dosage: 20 MEQ/15 ML
     Route: 048
  12. ZYVOX [Concomitant]
     Active Substance: LINEZOLID
     Indication: PNEUMONIA STAPHYLOCOCCAL
     Route: 065
  13. FOLIC ACID. [Concomitant]
     Active Substance: FOLIC ACID
     Route: 065
  14. LINZESS [Concomitant]
     Active Substance: LINACLOTIDE
     Route: 065
  15. OMEPRAZOLE. [Concomitant]
     Active Substance: OMEPRAZOLE
     Route: 065
  16. LEVOFLOXACIN. [Concomitant]
     Active Substance: LEVOFLOXACIN
     Route: 065
     Dates: start: 20150908
  17. LACTOBACILLUS ACIDOPHILUS [Concomitant]
     Active Substance: LACTOBACILLUS ACIDOPHILUS
     Route: 048
  18. ALPRAZOLAM. [Concomitant]
     Active Substance: ALPRAZOLAM
     Route: 065
     Dates: start: 20150823
  19. CARDIZEM [Concomitant]
     Active Substance: DILTIAZEM HYDROCHLORIDE
     Route: 065
  20. DOCUSATE SODIUM. [Concomitant]
     Active Substance: DOCUSATE SODIUM
     Route: 065
  21. DUONEB [Concomitant]
     Active Substance: ALBUTEROL SULFATE\IPRATROPIUM BROMIDE
     Dosage: 0.5 MG?2.5 MG/3 ML
     Route: 065

REACTIONS (2)
  - Acute kidney injury [Recovering/Resolving]
  - Gastric ulcer haemorrhage [Recovering/Resolving]

NARRATIVE: CASE EVENT DATE: 201604
